FAERS Safety Report 25013093 (Version 1)
Quarter: 2025Q1

REPORT INFORMATION
  Report Type: Spontaneous
  Country: US (occurrence: US)
  Receive Date: 20250226
  Receipt Date: 20250226
  Transmission Date: 20250408
  Serious: Yes (Hospitalization, Other)
  Sender: CATALYST PHARMA
  Company Number: US-CATALYSTPHARMACEUTICALPARTNERS-US-CATA-25-00247

PATIENT
  Age: 16 Year
  Sex: Female

DRUGS (2)
  1. PERAMPANEL [Suspect]
     Active Substance: PERAMPANEL
     Indication: Epilepsy
     Dosage: 8 MG DAILY
     Route: 048
  2. PERAMPANEL [Suspect]
     Active Substance: PERAMPANEL
     Route: 048

REACTIONS (24)
  - Seizure [Unknown]
  - Incoherent [Unknown]
  - Pneumonia aspiration [Unknown]
  - Unresponsive to stimuli [Recovered/Resolved]
  - Anion gap increased [Unknown]
  - Leukocytosis [Unknown]
  - Sinus tachycardia [Unknown]
  - Myoclonus [Unknown]
  - Decerebrate posture [Unknown]
  - Agitation [Unknown]
  - Vomiting [Unknown]
  - Somnolence [Unknown]
  - Mental status changes [Unknown]
  - Condition aggravated [Unknown]
  - Abnormal behaviour [Unknown]
  - Aggression [Unknown]
  - Hypotension [Recovered/Resolved]
  - Bradycardia [Recovered/Resolved]
  - Cognitive disorder [Unknown]
  - Pyrexia [Unknown]
  - Asthenia [Unknown]
  - Intentional overdose [Unknown]
  - Toxicity to various agents [Unknown]
  - Treatment noncompliance [Unknown]
